FAERS Safety Report 19700082 (Version 11)
Quarter: 2024Q1

REPORT INFORMATION
  Report Type: Spontaneous
  Country: DE (occurrence: DE)
  Receive Date: 20210813
  Receipt Date: 20240104
  Transmission Date: 20240410
  Serious: Yes (Other)
  Sender: FDA-Public Use
  Company Number: NVSC2021DE011263

PATIENT
  Age: 57 Year
  Sex: Female
  Weight: 52.7 kg

DRUGS (55)
  1. ZOLEDRONIC ACID [Suspect]
     Active Substance: ZOLEDRONIC ACID
     Indication: Metastases to bone
     Dosage: UNK, Q4W
     Route: 065
     Dates: start: 20201118
  2. ZOLEDRONIC ACID [Suspect]
     Active Substance: ZOLEDRONIC ACID
     Dosage: 4 MG
     Route: 065
     Dates: start: 20201216
  3. ZOLEDRONIC ACID [Suspect]
     Active Substance: ZOLEDRONIC ACID
     Dosage: UNK, Q4W
     Route: 065
  4. DOCETAXEL [Suspect]
     Active Substance: DOCETAXEL\DOCETAXEL ANHYDROUS
     Indication: Breast cancer
     Dosage: 120 MG (DATE OF LAST DOSE (118 MG) APPLICATION PRIOR EVENT 10/DEC/2020DATE OF LAST DOSE (118 MG) APP
     Route: 065
     Dates: start: 20201118, end: 20210104
  5. PERJETA [Suspect]
     Active Substance: PERTUZUMAB
     Indication: Breast cancer
     Dosage: DATE OF DOSE (420 MG) LAST APPLICATION PRIOR EVENT: 10/DEC/2020DATE OF DOSE (420 MG) LAST APPLICATIO
     Route: 065
     Dates: start: 20201210, end: 20210328
  6. PERJETA [Suspect]
     Active Substance: PERTUZUMAB
     Dosage: 420 MG
     Route: 065
     Dates: start: 20210518, end: 20220608
  7. TRASTUZUMAB [Suspect]
     Active Substance: TRASTUZUMAB
     Indication: Breast cancer
     Dosage: 336 MG
     Route: 042
     Dates: start: 20201210, end: 20210328
  8. TRASTUZUMAB [Suspect]
     Active Substance: TRASTUZUMAB
     Dosage: 336 MG
     Route: 042
     Dates: start: 20210518, end: 20220608
  9. CALCIUM\CHOLECALCIFEROL [Concomitant]
     Active Substance: CALCIUM\CHOLECALCIFEROL
     Indication: Product used for unknown indication
     Dosage: UNK, QD (CALCIUM 500 MG / VITAMIN D 400 IU DAILY)
     Route: 048
     Dates: start: 20201118
  10. CALCIUM\CHOLECALCIFEROL [Concomitant]
     Active Substance: CALCIUM\CHOLECALCIFEROL
     Dosage: 400 IU, QD
     Route: 048
     Dates: start: 20201118
  11. OMEPRAZOLE [Concomitant]
     Active Substance: OMEPRAZOLE
     Indication: Product used for unknown indication
     Dosage: 20 MG
     Route: 048
     Dates: start: 20210104, end: 20210109
  12. DEXAMETHASONE [Concomitant]
     Active Substance: DEXAMETHASONE
     Indication: Product used for unknown indication
     Dosage: 32 MG
     Route: 048
     Dates: start: 20201117, end: 20210106
  13. DEXAMETHASONE [Concomitant]
     Active Substance: DEXAMETHASONE
     Dosage: 8 MG
     Route: 042
     Dates: start: 20201118, end: 20210104
  14. DEXAMETHASONE [Concomitant]
     Active Substance: DEXAMETHASONE
     Dosage: 8 MG
     Route: 065
     Dates: start: 20220930, end: 20221023
  15. DEXAMETHASONE [Concomitant]
     Active Substance: DEXAMETHASONE
     Dosage: 8 MG
     Route: 065
     Dates: start: 20220728
  16. DEXAMETHASONE [Concomitant]
     Active Substance: DEXAMETHASONE
     Dosage: 8 MG
     Route: 065
     Dates: end: 20220728
  17. DIMETHINDENE MALEATE [Concomitant]
     Active Substance: DIMETHINDENE MALEATE
     Indication: Product used for unknown indication
     Dosage: 4 MG
     Route: 042
     Dates: start: 20201118, end: 20210104
  18. DIMETHINDENE MALEATE [Concomitant]
     Active Substance: DIMETHINDENE MALEATE
     Dosage: 4.000MG
     Route: 065
     Dates: start: 20201118, end: 20210104
  19. DIMETHINDENE MALEATE [Concomitant]
     Active Substance: DIMETHINDENE MALEATE
     Dosage: 4.000MG
     Route: 065
     Dates: start: 20201118, end: 20210104
  20. DIMETHINDENE MALEATE [Concomitant]
     Active Substance: DIMETHINDENE MALEATE
     Dosage: 4.000MG
     Route: 065
     Dates: start: 20201118, end: 20210104
  21. GYNOMUNAL [Concomitant]
     Indication: Product used for unknown indication
     Dosage: 2.5 MG
     Route: 061
     Dates: start: 20210208, end: 20210222
  22. NOVALGIN [Concomitant]
     Indication: Product used for unknown indication
     Dosage: 500 MG
     Route: 048
     Dates: start: 20210104, end: 20210109
  23. BISOPROLOL [Concomitant]
     Active Substance: BISOPROLOL\BISOPROLOL FUMARATE
     Indication: Product used for unknown indication
     Dosage: 2.5 MG (0.5 DAY)
     Route: 048
     Dates: start: 20210709
  24. ELIQUIS [Concomitant]
     Active Substance: APIXABAN
     Indication: Product used for unknown indication
     Dosage: 5 MG (0.5 DAY)
     Route: 048
     Dates: start: 20210709
  25. BEPANTHEN [Concomitant]
     Indication: Product used for unknown indication
     Dosage: UNK, QD (AUGEN- UND NASENSABLE)
     Route: 061
     Dates: start: 20210622
  26. SEA SALT [Concomitant]
     Active Substance: SEA SALT
     Indication: Product used for unknown indication
     Dosage: UNK (0.5 DAY)
     Route: 045
     Dates: start: 20211026
  27. SEA SALT [Concomitant]
     Active Substance: SEA SALT
     Dosage: UNK
     Route: 065
     Dates: start: 20211026
  28. SEA SALT [Concomitant]
     Active Substance: SEA SALT
     Route: 065
     Dates: start: 20211026
  29. SEA SALT [Concomitant]
     Active Substance: SEA SALT
     Route: 065
     Dates: start: 20211026
  30. GRANISETRON [Concomitant]
     Active Substance: GRANISETRON
     Indication: Product used for unknown indication
     Dosage: 1 MG (PER CYCLE), CYCLIC
     Route: 065
     Dates: start: 20220728
  31. GRANISETRON [Concomitant]
     Active Substance: GRANISETRON
     Dosage: 1 MG (PER CYCLE), CYCLIC
     Route: 065
     Dates: start: 20220728
  32. VITAMIN C [Concomitant]
     Active Substance: ASCORBIC ACID
     Indication: Product used for unknown indication
     Dosage: UNK UNK, QD
     Route: 065
     Dates: start: 20230116
  33. VITAMIN C [Concomitant]
     Active Substance: ASCORBIC ACID
     Dosage: QD
     Route: 065
     Dates: start: 20230116
  34. VITAMIN C [Concomitant]
     Active Substance: ASCORBIC ACID
     Dosage: QD
     Route: 065
     Dates: start: 20230116
  35. VITAMIN C [Concomitant]
     Active Substance: ASCORBIC ACID
     Dosage: DAILY
     Route: 065
     Dates: start: 20230531
  36. VITAMIN C [Concomitant]
     Active Substance: ASCORBIC ACID
     Dosage: 1000.000MG QD
     Route: 065
     Dates: start: 20230116, end: 20230530
  37. PANTOPRAZOLE [Concomitant]
     Active Substance: PANTOPRAZOLE
     Indication: Product used for unknown indication
     Dosage: UNK
     Route: 065
  38. PANTOPRAZOLE [Concomitant]
     Active Substance: PANTOPRAZOLE
     Dosage: UNK
     Route: 065
  39. PANTOPRAZOLE [Concomitant]
     Active Substance: PANTOPRAZOLE
     Dosage: UNK
     Route: 065
  40. IBUPROFEN [Concomitant]
     Active Substance: IBUPROFEN
     Indication: Product used for unknown indication
     Dosage: 600 MG, QD
     Route: 065
     Dates: start: 20221025, end: 20221025
  41. OMEGA-3 ACIDS [Concomitant]
     Active Substance: OMEGA-3 FATTY ACIDS
     Indication: Product used for unknown indication
     Dosage: UNK, QD
     Route: 065
     Dates: start: 20221216
  42. ACETAMINOPHEN [Concomitant]
     Active Substance: ACETAMINOPHEN
     Indication: Product used for unknown indication
     Dosage: 500 MG, QD
     Route: 065
     Dates: start: 20221024, end: 20221024
  43. AKYNZEO [Concomitant]
     Indication: Breast cancer
     Dosage: D1 CYCLE
     Route: 065
     Dates: start: 20230417
  44. KANJINTI [Suspect]
     Active Substance: TRASTUZUMAB-ANNS
     Indication: Breast cancer
     Dosage: 336.000MG
     Route: 042
     Dates: start: 20201210, end: 20210328
  45. KANJINTI [Suspect]
     Active Substance: TRASTUZUMAB-ANNS
     Dosage: 336.000MG
     Route: 042
     Dates: start: 20210518, end: 20220608
  46. ZIEXTENZO [Concomitant]
     Active Substance: PEGFILGRASTIM-BMEZ
     Indication: Product used for unknown indication
     Dosage: UNK
     Route: 065
  47. Nisita [Concomitant]
     Indication: Back pain
     Dosage: 9999.99 UNKNOWN, DAILY
     Route: 065
     Dates: start: 20211103, end: 20220427
  48. MAGNESIUM [Concomitant]
     Active Substance: MAGNESIUM
     Indication: Dry skin
     Dosage: THREE TIMES A DAY
     Route: 065
     Dates: start: 20220428, end: 20221215
  49. MAGNESIUM [Concomitant]
     Active Substance: MAGNESIUM
     Dosage: DAILY
     Route: 065
     Dates: start: 20221216
  50. POLYETHYLENE GLYCOLS [Concomitant]
     Active Substance: POLYETHYLENE GLYCOLS
     Indication: Anaemia
     Dosage: PM (AS NEEDED)
     Route: 065
     Dates: start: 20230530, end: 20230603
  51. POLYETHYLENE GLYCOLS [Concomitant]
     Active Substance: POLYETHYLENE GLYCOLS
     Dosage: 13.120G QOD
     Route: 065
     Dates: start: 20230822
  52. POLYETHYLENE GLYCOLS [Concomitant]
     Active Substance: POLYETHYLENE GLYCOLS
     Dosage: 13.120G QOD
     Route: 065
     Dates: start: 20230620, end: 20230624
  53. POLYETHYLENE GLYCOLS [Concomitant]
     Active Substance: POLYETHYLENE GLYCOLS
     Dosage: 13.120G QOD
     Route: 065
     Dates: start: 20230711, end: 20230715
  54. POLYETHYLENE GLYCOLS [Concomitant]
     Active Substance: POLYETHYLENE GLYCOLS
     Dosage: 13.120G QOD
     Route: 065
     Dates: start: 20230801, end: 20230801
  55. POLYETHYLENE GLYCOLS [Concomitant]
     Active Substance: POLYETHYLENE GLYCOLS
     Dosage: PM (AS NEEDED)
     Route: 065
     Dates: start: 20230509, end: 20230512

REACTIONS (13)
  - Atrial fibrillation [Recovered/Resolved]
  - Osteochondrosis [Not Recovered/Not Resolved]
  - Vulvovaginal dryness [Recovered/Resolved]
  - Left ventricular dysfunction [Recovered/Resolved]
  - Abdominal pain upper [Recovered/Resolved]
  - Anaemia [Recovered/Resolved]
  - Back pain [Not Recovered/Not Resolved]
  - Dysgeusia [Recovered/Resolved]
  - Dizziness [Not Recovered/Not Resolved]
  - Dry skin [Recovered/Resolved]
  - Chest discomfort [Recovered/Resolved]
  - Chest pain [Recovered/Resolved]
  - Left ventricular dysfunction [Recovered/Resolved]

NARRATIVE: CASE EVENT DATE: 20201217
